FAERS Safety Report 5546126-0 (Version None)
Quarter: 2007Q4

REPORT INFORMATION
  Report Type: 
  Country: None (occurrence: None)
  Receive Date: 20071211
  Receipt Date: 20071112
  Transmission Date: 20080405
  Serious: No
  Sender: FDA-Public Use
  Company Number: US-BRISTOL-MYERS SQUIBB COMPANY-13979596

PATIENT
  Age: 54 Year
  Sex: Female
  Weight: 89 kg

DRUGS (14)
  1. EMSAM [Suspect]
     Indication: DEPRESSION
     Dosage: PRIOR DOSE USED FOR 2 WEEKS WAS EMSAM 6MG/24HRS. CURRENT DOSE USED SINCE 9-NOV-2007
     Route: 062
     Dates: start: 20071109
  2. DEPAKOTE [Concomitant]
  3. SEROQUEL [Concomitant]
  4. VISTARIL [Concomitant]
  5. NARDIL [Concomitant]
  6. COLACE [Concomitant]
  7. SINEMET [Concomitant]
  8. LEVOTHYROXINE SODIUM [Concomitant]
  9. PRILOSEC [Concomitant]
  10. SENNA [Concomitant]
  11. VERAPAMIL [Concomitant]
  12. IMITREX [Concomitant]
  13. TYLENOL [Concomitant]
  14. MIRAPEX [Concomitant]

REACTIONS (3)
  - HEADACHE [None]
  - HEART RATE ABNORMAL [None]
  - SWELLING [None]
